FAERS Safety Report 21938309 (Version 3)
Quarter: 2024Q1

REPORT INFORMATION
  Report Type: Spontaneous
  Country: US (occurrence: US)
  Receive Date: 20230201
  Receipt Date: 20240123
  Transmission Date: 20240410
  Serious: No
  Sender: FDA-Public Use
  Company Number: US-PFIZER INC-PV202300019573

PATIENT
  Age: 80 Year
  Sex: Female
  Weight: 45.351 kg

DRUGS (2)
  1. IBRANCE [Suspect]
     Active Substance: PALBOCICLIB
     Indication: Neoplasm malignant
     Dosage: ONCE DAILY FOR THREE WEEK, OFF ONE WEEK
     Dates: start: 20211215
  2. LETROZOLE [Concomitant]
     Active Substance: LETROZOLE

REACTIONS (2)
  - Stress [Unknown]
  - Neoplasm progression [Unknown]
